FAERS Safety Report 7936798-5 (Version None)
Quarter: 2011Q4

REPORT INFORMATION
  Report Type: 
  Country: None (occurrence: None)
  Receive Date: 20111123
  Receipt Date: 20111108
  Transmission Date: 20120403
  Serious: Yes (Death)
  Sender: FDA-Public Use
  Company Number: JP-ROCHE-1010570

PATIENT
  Sex: Male

DRUGS (11)
  1. MUCODYNE [Concomitant]
     Route: 048
     Dates: start: 20110525, end: 20110629
  2. LAC-B [Concomitant]
     Route: 048
     Dates: start: 20110610, end: 20110629
  3. FAMOTIDINE [Concomitant]
     Route: 048
     Dates: start: 20110509, end: 20110629
  4. HUSCODE [Concomitant]
     Route: 048
     Dates: start: 20110608, end: 20110629
  5. NAPROXEN [Suspect]
     Indication: PYREXIA
     Route: 048
     Dates: start: 20110616, end: 20110629
  6. ARGAMATE [Concomitant]
     Route: 048
     Dates: start: 20110523, end: 20110629
  7. SODIUM BICARBONATE [Concomitant]
     Route: 048
     Dates: start: 20110523, end: 20110629
  8. REMERON [Suspect]
     Indication: DEPRESSION
     Route: 048
     Dates: start: 20110602, end: 20110622
  9. DICLOFENAC SODIUM [Suspect]
     Indication: PYREXIA
     Route: 054
     Dates: start: 20110620, end: 20110629
  10. LACTULOSE [Concomitant]
     Route: 048
     Dates: start: 20110608, end: 20110629
  11. LIVACT [Concomitant]
     Route: 048
     Dates: start: 20110607, end: 20110629

REACTIONS (3)
  - AGRANULOCYTOSIS [None]
  - SHOCK [None]
  - MULTI-ORGAN FAILURE [None]
